FAERS Safety Report 15528270 (Version 3)
Quarter: 2018Q4

REPORT INFORMATION
  Report Type: Spontaneous
  Country: FR (occurrence: FR)
  Receive Date: 20181020
  Receipt Date: 20181101
  Transmission Date: 20190205
  Serious: Yes (Hospitalization, Other)
  Sender: FDA-Public Use
  Company Number: FR-AUROBINDO-AUR-APL-2018-050568

PATIENT
  Age: 77 Year
  Sex: Female
  Weight: 61 kg

DRUGS (4)
  1. ENTRESTO [Suspect]
     Active Substance: SACUBITRIL\VALSARTAN
     Dosage: 2 DOSAGE FORM, ONCE A DAY, 1 DF (49/51 MG), BID
     Route: 048
     Dates: start: 20170828
  2. BISOPROLOL [Suspect]
     Active Substance: BISOPROLOL
     Indication: CARDIAC FAILURE
     Dosage: 7.5 MILLIGRAM
     Route: 048
     Dates: start: 20161008
  3. ENTRESTO [Suspect]
     Active Substance: SACUBITRIL\VALSARTAN
     Indication: CARDIAC FAILURE
     Dosage: 200 MILLIGRAM, DAILY
     Route: 048
     Dates: start: 20170828
  4. BISOPROLOL [Suspect]
     Active Substance: BISOPROLOL
     Dosage: 7.5 MILLIGRAM
     Route: 048
     Dates: start: 20161108

REACTIONS (5)
  - Ejection fraction decreased [Unknown]
  - Loss of consciousness [Recovered/Resolved]
  - Paroxysmal arrhythmia [Unknown]
  - Atrial fibrillation [Recovered/Resolved with Sequelae]
  - Bradyarrhythmia [Recovered/Resolved]

NARRATIVE: CASE EVENT DATE: 20180129
